FAERS Safety Report 12410188 (Version 1)
Quarter: 2016Q2

REPORT INFORMATION
  Report Type: Spontaneous
  Country: None (occurrence: None)
  Receive Date: 20160526
  Receipt Date: 20160526
  Transmission Date: 20160815
  Serious: Yes (Hospitalization)
  Sender: FDA-Public Use
  Company Number: None

PATIENT
  Age: 36 Year
  Sex: Female
  Weight: 74.39 kg

DRUGS (1)
  1. KENALOG [Suspect]
     Active Substance: TRIAMCINOLONE ACETONIDE
     Indication: NECK PAIN
     Dosage: INJECTED INTO SPINAL AREA
     Dates: start: 20160516, end: 20160516

REACTIONS (2)
  - Muscular weakness [None]
  - Mobility decreased [None]

NARRATIVE: CASE EVENT DATE: 20160517
